FAERS Safety Report 6536109-6 (Version None)
Quarter: 2010Q1

REPORT INFORMATION
  Report Type: 
  Country: None (occurrence: None)
  Receive Date: 20100113
  Receipt Date: 20100107
  Transmission Date: 20100710
  Serious: Yes (Death)
  Sender: FDA-Public Use
  Company Number: JP-ROCHE-672995

PATIENT
  Sex: Male
  Weight: 40 kg

DRUGS (11)
  1. AVASTIN [Suspect]
     Indication: COLON CANCER
     Route: 041
     Dates: start: 20090926
  2. ELPLAT [Concomitant]
     Route: 041
     Dates: start: 20090926
  3. FLUOROURACIL [Concomitant]
     Route: 040
     Dates: start: 20090826
  4. FLUOROURACIL [Concomitant]
     Route: 040
     Dates: start: 20090826
  5. LEVOFOLINATE [Concomitant]
     Route: 041
     Dates: start: 20090826
  6. DECADRON [Concomitant]
  7. GRANISETRON [Concomitant]
     Dates: start: 20090826
  8. GASTER [Concomitant]
     Dates: start: 20090826, end: 20091209
  9. CALCICOL [Concomitant]
     Dates: start: 20090826
  10. CALCICOL [Concomitant]
  11. MAGNESIUM SULFATE [Concomitant]
     Dosage: DRUG NAME: CONCLYTE-MG
     Dates: start: 20090826

REACTIONS (4)
  - GASTROINTESTINAL PERFORATION [None]
  - MULTI-ORGAN FAILURE [None]
  - SEPSIS [None]
  - STOMATITIS [None]
